FAERS Safety Report 4290961-6 (Version None)
Quarter: 2004Q1

REPORT INFORMATION
  Report Type: 
  Country: None (occurrence: None)
  Receive Date: 20040209
  Receipt Date: 20040121
  Transmission Date: 20041129
  Serious: Yes (Disabling)
  Sender: FDA-Public Use
  Company Number: PHNU2003DE04276

PATIENT
  Age: 88 Year
  Sex: Male

DRUGS (3)
  1. VISUDYNE [Suspect]
     Indication: MACULAR DEGENERATION
     Dates: start: 20031104, end: 20031104
  2. REWODINA [Concomitant]
  3. DEXAMETHASONE [Concomitant]

REACTIONS (3)
  - DISEASE PROGRESSION [None]
  - MACULAR OEDEMA [None]
  - RETINAL HAEMORRHAGE [None]
